FAERS Safety Report 8915482 (Version 2)
Quarter: 2013Q1

REPORT INFORMATION
  Report Type: Spontaneous
  Country: US (occurrence: US)
  Receive Date: 20121119
  Receipt Date: 20130103
  Transmission Date: 20140127
  Serious: Yes (Other)
  Sender: FDA-Public Use
  Company Number: US-BAYER-2012-118781

PATIENT
  Age: 23 Year
  Sex: Female
  Weight: 82.99 kg

DRUGS (2)
  1. MIRENA [Suspect]
     Indication: CONTRACEPTION
     Dosage: 20 MCG/24HR, CONT
     Route: 015
     Dates: start: 20120504
  2. ANTIHYPERTENSIVES [Concomitant]
     Indication: HYPERTENSION

REACTIONS (6)
  - Vaginal haemorrhage [None]
  - Genital haemorrhage [Not Recovered/Not Resolved]
  - Hypomenorrhoea [None]
  - Menstruation delayed [None]
  - Back pain [None]
  - Vaginitis bacterial [None]
